FAERS Safety Report 24638381 (Version 1)
Quarter: 2024Q4

REPORT INFORMATION
  Report Type: Spontaneous
  Country: US (occurrence: None)
  Receive Date: 20241119
  Receipt Date: 20241119
  Transmission Date: 20250115
  Serious: Yes (Hospitalization)
  Sender: Public
  Company Number: None

PATIENT
  Age: 77 Year
  Sex: Male

DRUGS (1)
  1. SULFUR HEXAFLUORIDE [Suspect]
     Active Substance: SULFUR HEXAFLUORIDE
     Indication: Echocardiogram
     Dosage: OTHER FREQUENCY : ONCE;?
     Route: 042
     Dates: start: 20240326, end: 20240326

REACTIONS (5)
  - Flushing [None]
  - Nausea [None]
  - Retching [None]
  - Hypotension [None]
  - Contrast media reaction [None]

NARRATIVE: CASE EVENT DATE: 20240326
